FAERS Safety Report 15959516 (Version 1)
Quarter: 2019Q1

REPORT INFORMATION
  Report Type: Spontaneous
  Country: FR (occurrence: FR)
  Receive Date: 20190214
  Receipt Date: 20190214
  Transmission Date: 20190417
  Serious: Yes (Hospitalization)
  Sender: FDA-Public Use
  Company Number: FR-ACCORD-106959

PATIENT
  Age: 70 Year
  Sex: Male
  Weight: 67 kg

DRUGS (16)
  1. METHYLPREDNISOLONE MYLAN [Suspect]
     Active Substance: METHYLPREDNISOLONE
     Indication: PREMEDICATION
     Route: 042
     Dates: start: 20180522
  2. FLUOROURACILE ACCORD [Suspect]
     Active Substance: FLUOROURACIL
     Indication: COLORECTAL CANCER
     Route: 042
     Dates: start: 20180522
  3. DIFFU K [Concomitant]
     Active Substance: POTASSIUM CHLORIDE
  4. CALCIUM FOLINATE SANDOZ [Suspect]
     Active Substance: LEUCOVORIN CALCIUM
     Indication: COLORECTAL CANCER
     Route: 042
     Dates: start: 20180522
  5. ONDANSETRON. [Suspect]
     Active Substance: ONDANSETRON
     Indication: PREMEDICATION
     Route: 048
     Dates: start: 20180522
  6. LOVENOX [Concomitant]
     Active Substance: ENOXAPARIN SODIUM
  7. SPECIAFOLDINE [Concomitant]
     Active Substance: FOLIC ACID
  8. OXALIPLATIN ACCORD [Suspect]
     Active Substance: OXALIPLATIN
     Indication: COLORECTAL CANCER
     Route: 042
     Dates: start: 20180522
  9. IRINOTECAN MEDAC [Suspect]
     Active Substance: IRINOTECAN
     Indication: COLORECTAL CANCER
     Route: 042
     Dates: start: 20180522
  10. OGAST [Concomitant]
     Active Substance: LANSOPRAZOLE
  11. SMECTA [Concomitant]
     Active Substance: MONTMORILLONITE
  12. ATROPINE. [Suspect]
     Active Substance: ATROPINE
     Indication: COLORECTAL CANCER
     Route: 042
     Dates: start: 20180522
  13. TIORFAN [Concomitant]
     Active Substance: RACECADOTRIL
  14. GAVISCON [Concomitant]
     Active Substance: ALUMINUM HYDROXIDE\MAGNESIUM CARBONATE
  15. GELOPECTOSE [Concomitant]
  16. LASILIX [Concomitant]
     Active Substance: FUROSEMIDE

REACTIONS (4)
  - Diarrhoea [Not Recovered/Not Resolved]
  - Hypokalaemia [Recovered/Resolved]
  - Acute kidney injury [Recovered/Resolved]
  - Dehydration [Recovered/Resolved]

NARRATIVE: CASE EVENT DATE: 20180522
